FAERS Safety Report 26122338 (Version 1)
Quarter: 2025Q4

REPORT INFORMATION
  Report Type: Spontaneous
  Country: US (occurrence: None)
  Receive Date: 20251204
  Receipt Date: 20251204
  Transmission Date: 20260117
  Serious: Yes (Hospitalization)
  Sender: FDA-CTU
  Company Number: None

PATIENT
  Sex: Female

DRUGS (5)
  1. AMBRISENTAN [Suspect]
     Active Substance: AMBRISENTAN
     Indication: Pulmonary hypertension
     Dosage: FREQUENCY : DAILY;?
     Route: 048
     Dates: start: 20251114
  2. AMBRISENTAN [Suspect]
     Active Substance: AMBRISENTAN
     Indication: Pulmonary arterial hypertension
  3. C-TREPROSTINIL 0.2MG/ML [Concomitant]
  4. WINREVAIR [Concomitant]
     Active Substance: SOTATERCEPT-CSRK
  5. AMBRISENTAN [Concomitant]
     Active Substance: AMBRISENTAN

REACTIONS (1)
  - Hypervolaemia [None]
